FAERS Safety Report 5086940-1 (Version None)
Quarter: 2006Q3

REPORT INFORMATION
  Report Type: 
  Country: None (occurrence: None)
  Receive Date: 20060818
  Receipt Date: 20060809
  Transmission Date: 20061208
  Serious: Yes (Other)
  Sender: FDA-Public Use
  Company Number: 2006097628

PATIENT
  Age: 54 Year
  Sex: Male
  Weight: 45.3597 kg

DRUGS (2)
  1. ZOLOFT [Suspect]
     Indication: PANIC ATTACK
     Dosage: 50 MG (50 MG, 1 IN 1 D)
     Dates: start: 20011101
  2. ZOLOFT [Suspect]
     Indication: STRESS
     Dosage: 50 MG (50 MG, 1 IN 1 D)
     Dates: start: 20011101

REACTIONS (10)
  - CHEST PAIN [None]
  - EMOTIONAL DISORDER [None]
  - HALLUCINATION, AUDITORY [None]
  - HALLUCINATION, VISUAL [None]
  - INTELLIGENCE INCREASED [None]
  - MENTAL DISORDER [None]
  - SOLILOQUY [None]
  - STRESS [None]
  - THINKING ABNORMAL [None]
  - UNEVALUABLE EVENT [None]
